FAERS Safety Report 22006188 (Version 1)
Quarter: 2023Q1

REPORT INFORMATION
  Report Type: Spontaneous
  Country: JP (occurrence: JP)
  Receive Date: 20230217
  Receipt Date: 20230217
  Transmission Date: 20230417
  Serious: Yes (Hospitalization)
  Sender: FDA-Public Use
  Company Number: JP-PFIZER INC-PV202300028728

PATIENT
  Age: 65 Year
  Sex: Male

DRUGS (1)
  1. SUNITINIB MALATE [Suspect]
     Active Substance: SUNITINIB MALATE
     Indication: Metastatic renal cell carcinoma
     Dosage: 25 MG

REACTIONS (3)
  - Pyrexia [Recovered/Resolved]
  - Hepatic function abnormal [Recovered/Resolved]
  - General physical health deterioration [Recovered/Resolved]
